FAERS Safety Report 5987553-7 (Version None)
Quarter: 2008Q4

REPORT INFORMATION
  Report Type: 
  Country: None (occurrence: None)
  Receive Date: 20081209
  Receipt Date: 20081201
  Transmission Date: 20090506
  Serious: Yes (Hospitalization)
  Sender: FDA-Public Use
  Company Number: DE-SANOFI-SYNTHELABO-A04200800809

PATIENT
  Sex: Female

DRUGS (5)
  1. AVASTIN [Suspect]
     Indication: COLON CANCER METASTATIC
     Route: 041
     Dates: start: 20080610, end: 20080610
  2. AVASTIN [Suspect]
     Route: 041
     Dates: start: 20080610, end: 20080610
  3. ELOXATIN [Suspect]
     Indication: COLON CANCER METASTATIC
     Route: 041
     Dates: start: 20080601, end: 20080601
  4. FOLINIC ACID [Suspect]
     Indication: COLON CANCER METASTATIC
     Route: 041
     Dates: start: 20080601, end: 20080601
  5. FLUOROURACIL [Suspect]
     Indication: COLON CANCER METASTATIC
     Route: 041
     Dates: start: 20080601, end: 20080601

REACTIONS (3)
  - BLADDER PAIN [None]
  - CYSTITIS [None]
  - HAEMATURIA [None]
